FAERS Safety Report 9055062 (Version 1)
Quarter: 2013Q1

REPORT INFORMATION
  Report Type: Spontaneous
  Country: FR (occurrence: FR)
  Receive Date: 20130206
  Receipt Date: 20130206
  Transmission Date: 20140127
  Serious: Yes (Life-Threatening, Hospitalization, Other)
  Sender: FDA-Public Use
  Company Number: FR-JNJFOC-20130103220

PATIENT
  Age: 75 Year
  Sex: Male
  Weight: 107 kg

DRUGS (11)
  1. REMICADE [Suspect]
     Indication: CROHN^S DISEASE
     Route: 042
     Dates: start: 20110330
  2. REMICADE [Suspect]
     Indication: CROHN^S DISEASE
     Route: 042
     Dates: start: 20121105
  3. REMICADE [Suspect]
     Indication: CROHN^S DISEASE
     Route: 042
     Dates: start: 20130104, end: 20130104
  4. POLARAMIN [Suspect]
     Indication: PREMEDICATION
     Route: 042
     Dates: start: 20130104
  5. SOLU-MEDROL [Suspect]
     Indication: PREMEDICATION
     Route: 042
     Dates: start: 20130104
  6. GLUCOPHAGE [Concomitant]
     Route: 065
  7. INEXIUM [Concomitant]
     Route: 065
  8. DUOPLAVIN [Concomitant]
     Route: 065
  9. ALDACTONE [Concomitant]
     Route: 065
  10. TAHOR [Concomitant]
     Route: 065
  11. KAYEXALATE [Concomitant]
     Indication: PRODUCT USED FOR UNKNOWN INDICATION
     Route: 048

REACTIONS (10)
  - Hypotension [Recovered/Resolved]
  - Chills [Recovered/Resolved]
  - Anaphylactic shock [Recovered/Resolved]
  - Livedo reticularis [Recovered/Resolved]
  - Dyspnoea [Recovered/Resolved]
  - Tachycardia [Recovered/Resolved]
  - Hypovolaemic shock [Recovered/Resolved]
  - Erythema [Recovered/Resolved]
  - Hyperthermia [Recovered/Resolved]
  - Infusion related reaction [Recovered/Resolved]
